FAERS Safety Report 4390882-4 (Version None)
Quarter: 2004Q2

REPORT INFORMATION
  Report Type: 
  Country: None (occurrence: None)
  Receive Date: 20040630
  Receipt Date: 20040615
  Transmission Date: 20050107
  Serious: Yes (Hospitalization)
  Sender: FDA-Public Use
  Company Number: 172121

PATIENT
  Age: 58 Year
  Sex: Female
  Weight: 113.3993 kg

DRUGS (6)
  1. AVONEX [Suspect]
     Indication: MULTIPLE SCLEROSIS
     Dosage: 30 MCG QW IM
     Route: 030
     Dates: start: 19990101
  2. PREVACID [Concomitant]
  3. PAXIL [Concomitant]
  4. DITROPAN XL [Concomitant]
  5. PROVIGIL [Concomitant]
  6. DILANTIN [Concomitant]

REACTIONS (5)
  - ARTHRALGIA [None]
  - BLOOD PRESSURE INCREASED [None]
  - CHONDROPATHY [None]
  - MUSCLE SPASMS [None]
  - OXYGEN SATURATION DECREASED [None]
